FAERS Safety Report 6493959-2 (Version None)
Quarter: 2009Q4

REPORT INFORMATION
  Report Type: 
  Country: None (occurrence: None)
  Receive Date: 20091214
  Receipt Date: 20081229
  Transmission Date: 20100525
  Serious: No
  Sender: FDA-Public Use
  Company Number: US-BRISTOL-MYERS SQUIBB COMPANY-14426753

PATIENT
  Age: 22 Year
  Sex: Female
  Weight: 54 kg

DRUGS (2)
  1. ABILIFY [Suspect]
     Indication: BIPOLAR DISORDER
     Dosage: DECREASED TO 5MG QD.
  2. NUVARING [Concomitant]

REACTIONS (2)
  - DISTURBANCE IN ATTENTION [None]
  - EYE MOVEMENT DISORDER [None]
